FAERS Safety Report 12762982 (Version 2)
Quarter: 2016Q4

REPORT INFORMATION
  Report Type: Spontaneous
  Country: FR (occurrence: FR)
  Receive Date: 20160920
  Receipt Date: 20161023
  Transmission Date: 20170207
  Serious: Yes (Other)
  Sender: FDA-Public Use
  Company Number: FR-ROCHE-1830894

PATIENT
  Age: 43 Year
  Sex: Male
  Weight: 82 kg

DRUGS (2)
  1. ZELBORAF [Suspect]
     Active Substance: VEMURAFENIB
     Indication: METASTATIC MALIGNANT MELANOMA
     Route: 048
     Dates: start: 20160401
  2. COTELLIC [Suspect]
     Active Substance: COBIMETINIB
     Indication: METASTATIC MALIGNANT MELANOMA
     Route: 048
     Dates: start: 20160401, end: 20160422

REACTIONS (8)
  - Ejection fraction decreased [Recovering/Resolving]
  - Fatigue [Not Recovered/Not Resolved]
  - Oedema [Unknown]
  - Alopecia [Not Recovered/Not Resolved]
  - Foot deformity [Not Recovered/Not Resolved]
  - Dry skin [Not Recovered/Not Resolved]
  - Cardiac failure [Unknown]
  - Swelling face [Unknown]

NARRATIVE: CASE EVENT DATE: 201608
